FAERS Safety Report 20757341 (Version 1)
Quarter: 2022Q2

REPORT INFORMATION
  Report Type: Spontaneous
  Country: CH (occurrence: CH)
  Receive Date: 20220427
  Receipt Date: 20220427
  Transmission Date: 20220721
  Serious: Yes (Other)
  Sender: FDA-Public Use
  Company Number: CH-BRISTOL-MYERS SQUIBB COMPANY-2022-026640

PATIENT
  Age: 59 Year
  Sex: Male
  Weight: 91 kg

DRUGS (2)
  1. NIVOLUMAB [Suspect]
     Active Substance: NIVOLUMAB
     Indication: Clear cell renal cell carcinoma
     Dosage: CYCLE 1 ON 22-NOV-2021, CYCLE 2 ON 13-DEC-2021. PLANNED WERE 4 CYCLES.
  2. IPILIMUMAB [Suspect]
     Active Substance: IPILIMUMAB
     Indication: Clear cell renal cell carcinoma

REACTIONS (3)
  - Drug-induced liver injury [Unknown]
  - Hepatitis [Unknown]
  - Dermatitis [Unknown]
